FAERS Safety Report 12075083 (Version 1)
Quarter: 2016Q1

REPORT INFORMATION
  Report Type: Spontaneous
  Country: US (occurrence: US)
  Receive Date: 20160212
  Receipt Date: 20160212
  Transmission Date: 20160526
  Serious: Yes (Hospitalization, Other)
  Sender: FDA-Public Use
  Company Number: PHHY2016US018507

PATIENT
  Age: 42 Year
  Sex: Male
  Weight: 85 kg

DRUGS (5)
  1. LIORESAL [Suspect]
     Active Substance: BACLOFEN
     Dosage: 800 UG, QD
     Route: 037
  2. LIORESAL [Suspect]
     Active Substance: BACLOFEN
     Indication: MUSCLE SPASTICITY
     Dosage: 1201.4 UG, QD
     Route: 037
  3. ALBUTEROL SULFATE TABLETS USP [Suspect]
     Active Substance: ALBUTEROL SULFATE
     Indication: PRODUCT USED FOR UNKNOWN INDICATION
     Route: 065
  4. FAMOTIDINE. [Suspect]
     Active Substance: FAMOTIDINE
     Indication: PRODUCT USED FOR UNKNOWN INDICATION
     Route: 065
  5. DETROL [Suspect]
     Active Substance: TOLTERODINE TARTRATE
     Indication: PRODUCT USED FOR UNKNOWN INDICATION
     Route: 065

REACTIONS (6)
  - Implant site extravasation [Recovering/Resolving]
  - Overdose [Recovering/Resolving]
  - Hyporesponsive to stimuli [Recovering/Resolving]
  - Loss of consciousness [Recovering/Resolving]
  - Altered state of consciousness [Recovering/Resolving]
  - Heart rate decreased [Recovering/Resolving]

NARRATIVE: CASE EVENT DATE: 20160201
